FAERS Safety Report 8622001-X (Version None)
Quarter: 2012Q3

REPORT INFORMATION
  Report Type: 
  Country: None (occurrence: None)
  Receive Date: 20120823
  Receipt Date: 20120823
  Transmission Date: 20120928
  Serious: Yes (Hospitalization)
  Sender: FDA-Public Use
  Company Number: None

PATIENT
  Sex: Female
  Weight: 68.0396 kg

DRUGS (5)
  1. CYMBALTA [Concomitant]
  2. BONIVA [Suspect]
     Indication: OSTEOPOROSIS POSTMENOPAUSAL
     Dosage: 3 MG, EVERY 3 MONHTS, IV BOLUS
     Route: 041
     Dates: start: 20070901, end: 20120101
  3. HYDROCHLOROTHIAZIDE [Concomitant]
  4. PRAVASTATIN [Concomitant]
  5. THYROID TAB [Concomitant]

REACTIONS (1)
  - FEMUR FRACTURE [None]
